FAERS Safety Report 5829978-6 (Version None)
Quarter: 2008Q3

REPORT INFORMATION
  Report Type: 
  Country: None (occurrence: None)
  Receive Date: 20080801
  Receipt Date: 20080721
  Transmission Date: 20090109
  Serious: Yes (Other)
  Sender: FDA-Public Use
  Company Number: US-ROCHE-570560

PATIENT
  Sex: Male

DRUGS (6)
  1. PEGASYS [Suspect]
     Route: 065
     Dates: start: 20070901
  2. RIBAVIRIN [Suspect]
     Route: 065
     Dates: start: 20070901
  3. KALETRA [Concomitant]
     Dosage: STRENGTH REPORTED AS: 200 MG/ 50 MG
  4. INVIRASE [Concomitant]
     Dosage: DOSAGE REPORTED AS: 2 TABLETS TWICE DAILY.
  5. SUSTIVA [Concomitant]
     Dosage: FREQUENCY REPORTED AS 1 AT BED TIME
  6. VIREAD [Concomitant]

REACTIONS (10)
  - ANAEMIA [None]
  - CHEST PAIN [None]
  - CONVULSION [None]
  - COUGH [None]
  - DIARRHOEA HAEMORRHAGIC [None]
  - HEADACHE [None]
  - HEPATITIS C [None]
  - LOSS OF CONSCIOUSNESS [None]
  - MALAISE [None]
  - MOOD SWINGS [None]
